FAERS Safety Report 8295139-7 (Version None)
Quarter: 2012Q2

REPORT INFORMATION
  Report Type: 
  Country: None (occurrence: None)
  Receive Date: 20120418
  Receipt Date: 20120416
  Transmission Date: 20120825
  Serious: Yes (Life-Threatening, Hospitalization)
  Sender: FDA-Public Use
  Company Number: US-PFIZER INC-2011US-42919

PATIENT
  Sex: Male

DRUGS (9)
  1. DIOVAN [Suspect]
     Route: 065
  2. ACETYLSALICYLIC ACID [Concomitant]
     Route: 065
  3. VERAPAMIL HCL [Suspect]
     Dosage: UNK
  4. SPIRONOLACTONE [Suspect]
  5. BLINDED THERAPY [Suspect]
     Indication: TYPE 2 DIABETES MELLITUS
     Dosage: 40 IU, UNK
     Route: 065
     Dates: start: 20110202, end: 20110517
  6. EZETIMIBE [Concomitant]
     Dosage: UNK
     Route: 065
  7. METOPROLOL TARTRATE [Suspect]
     Dosage: UNK
     Route: 065
  8. LANTUS [Suspect]
     Indication: DIABETES MELLITUS
     Dosage: 40 IU, UNK
     Route: 065
  9. LASIX [Suspect]
     Dosage: UNK
     Route: 065

REACTIONS (2)
  - HYPERKALAEMIA [None]
  - BLOOD CREATININE INCREASED [None]
